FAERS Safety Report 13184998 (Version 2)
Quarter: 2017Q2

REPORT INFORMATION
  Report Type: Other
  Country: US (occurrence: US)
  Receive Date: 20170203
  Receipt Date: 20170403
  Transmission Date: 20170830
  Serious: No
  Sender: FDA-Public Use
  Company Number: US-APOTEX-2017AP005959

PATIENT

DRUGS (1)
  1. FENTANYL. [Suspect]
     Active Substance: FENTANYL
     Indication: PRODUCT USED FOR UNKNOWN INDICATION
     Dosage: 75 MCG/HR, UNK
     Route: 062
     Dates: start: 201611

REACTIONS (7)
  - Application site burn [Unknown]
  - Application site exfoliation [Unknown]
  - Application site rash [Unknown]
  - Product adhesion issue [Unknown]
  - Application site haemorrhage [Unknown]
  - Application site pruritus [Unknown]
  - Application site erythema [Unknown]
